FAERS Safety Report 17306309 (Version 3)
Quarter: 2020Q2

REPORT INFORMATION
  Report Type: Spontaneous
  Country: PT (occurrence: PT)
  Receive Date: 20200123
  Receipt Date: 20200427
  Transmission Date: 20200713
  Serious: Yes (Hospitalization)
  Sender: FDA-Public Use
  Company Number: PT-MYLANLABS-2020M1006724

PATIENT
  Age: 78 Year
  Sex: Female

DRUGS (6)
  1. AZITHROMYCIN ANHYDROUS. [Suspect]
     Active Substance: AZITHROMYCIN ANHYDROUS
     Indication: PNEUMONIA
     Dosage: UNK
     Route: 065
  2. ECONAZOLE. [Concomitant]
     Active Substance: ECONAZOLE NITRATE
     Indication: GENITAL CANDIDIASIS
     Dosage: UNK
  3. AZITHROMYCIN ANHYDROUS. [Suspect]
     Active Substance: AZITHROMYCIN ANHYDROUS
     Indication: PULMONARY SEPSIS
  4. FLUCONAZOLE. [Concomitant]
     Active Substance: FLUCONAZOLE
     Indication: GENITAL CANDIDIASIS
     Dosage: 2 DOSAGE FORM, Q3D ( DOSES OF 150 MG EVERY 72 HOURS)
     Route: 048
  5. CEFTRIAXONE. [Suspect]
     Active Substance: CEFTRIAXONE
     Indication: PULMONARY SEPSIS
  6. CEFTRIAXONE. [Suspect]
     Active Substance: CEFTRIAXONE
     Indication: PNEUMONIA
     Dosage: 2 GRAM, QD
     Route: 065

REACTIONS (3)
  - Vulvovaginal candidiasis [Recovered/Resolved]
  - Infection [Recovering/Resolving]
  - Condition aggravated [Recovered/Resolved]
